FAERS Safety Report 23451194 (Version 1)
Quarter: 2024Q1

REPORT INFORMATION
  Report Type: Spontaneous
  Country: US (occurrence: US)
  Receive Date: 20240129
  Receipt Date: 20240129
  Transmission Date: 20240410
  Serious: No
  Sender: FDA-Public Use
  Company Number: US-BAYER-2024A009785

PATIENT
  Age: 21 Year
  Sex: Male

DRUGS (2)
  1. JIVI [Suspect]
     Active Substance: DAMOCTOCOG ALFA PEGOL
     Indication: Factor VIII deficiency
     Dosage: 5300 IU, PRN (: EVERY MONDAY AND THURSDAY AS PROPHYLAXIS AND ONCE DAILY FOR 1 WEEK AS NEEDED FOR BLE
     Route: 042
     Dates: start: 202306
  2. JIVI [Suspect]
     Active Substance: DAMOCTOCOG ALFA PEGOL
     Indication: Factor VIII deficiency
     Dosage: 5300 IU, PRN (EVERY MONDAY AND THURSDAY AS PROPHYLAXIS AND ONCE DAILY FOR 1 WEEK AS NEEDED FOR BLEED
     Route: 042
     Dates: start: 202306

REACTIONS (1)
  - Haemorrhage [None]

NARRATIVE: CASE EVENT DATE: 20240113
